FAERS Safety Report 13463506 (Version 1)
Quarter: 2017Q2

REPORT INFORMATION
  Report Type: Spontaneous
  Country: US (occurrence: US)
  Receive Date: 20170420
  Receipt Date: 20170420
  Transmission Date: 20170830
  Serious: Yes (Other)
  Sender: FDA-Public Use
  Company Number: US-MEDA-2017040029

PATIENT
  Age: 56 Year
  Sex: Male

DRUGS (1)
  1. SOMA [Suspect]
     Active Substance: CARISOPRODOL
     Route: 048
     Dates: start: 2002

REACTIONS (1)
  - Psychotic disorder [Recovered/Resolved]

NARRATIVE: CASE EVENT DATE: 2002
